FAERS Safety Report 9966536 (Version 1)
Quarter: 2014Q1

REPORT INFORMATION
  Report Type: Report from Study
  Country: US (occurrence: US)
  Receive Date: 20140305
  Receipt Date: 20140305
  Transmission Date: 20141002
  Serious: No
  Sender: FDA-Public Use
  Company Number: US-ABBVIE-13P-163-1121050-00

PATIENT
  Age: 45 Year
  Sex: Female
  Weight: 90.8 kg

DRUGS (8)
  1. HUMIRA [Suspect]
     Indication: ANKYLOSING SPONDYLITIS
     Route: 058
     Dates: start: 201210, end: 201302
  2. HUMIRA [Suspect]
     Indication: COLITIS ULCERATIVE
  3. METHOTREXATE [Suspect]
     Indication: SPONDYLOARTHROPATHY
     Route: 048
     Dates: start: 201301, end: 201302
  4. HYDROXYUREA [Concomitant]
     Indication: ESSENTIAL THROMBOCYTHAEMIA
  5. SYNTHROID [Concomitant]
     Indication: HYPOTHYROIDISM
  6. CYMBALTA [Concomitant]
     Indication: FIBROMYALGIA
  7. GABAPENTIN [Concomitant]
     Indication: MIGRAINE
  8. FIORICET [Concomitant]
     Indication: MIGRAINE

REACTIONS (3)
  - Ear infection [Recovered/Resolved]
  - Immunosuppression [Recovering/Resolving]
  - Hepatic enzyme increased [Not Recovered/Not Resolved]
